FAERS Safety Report 9028817 (Version 1)
Quarter: 2013Q1

REPORT INFORMATION
  Report Type: Report from Study
  Country: TR (occurrence: TR)
  Receive Date: 20130124
  Receipt Date: 20130124
  Transmission Date: 20140127
  Serious: Yes (Death, Other)
  Sender: FDA-Public Use
  Company Number: TR-BRISTOL-MYERS SQUIBB COMPANY-15553993

PATIENT
  Age: 64 Year
  Sex: Male

DRUGS (1)
  1. IPILIMUMAB [Suspect]
     Indication: MALIGNANT MELANOMA
     Dosage: NO OF COURSES:4
     Route: 042
     Dates: start: 20100712

REACTIONS (4)
  - Malignant neoplasm progression [Fatal]
  - Muscular weakness [Unknown]
  - Nausea [Unknown]
  - Oesophageal candidiasis [Unknown]
